FAERS Safety Report 10007987 (Version 1)
Quarter: 2014Q1

REPORT INFORMATION
  Report Type: Spontaneous
  Country: US (occurrence: None)
  Receive Date: 20140228
  Receipt Date: 20140228
  Transmission Date: 20141002
  Serious: Yes (Other)
  Sender: FDA-Public Use
  Company Number: 225548

PATIENT
  Age: 55 Year
  Sex: Female

DRUGS (4)
  1. PICATO [Suspect]
     Indication: ACTINIC KERATOSIS
     Route: 061
     Dates: start: 20131213
  2. PICATO [Suspect]
     Indication: PRODUCT USED FOR UNKNOWN INDICATION
     Route: 061
     Dates: start: 20131213
  3. ALLEGRA [Concomitant]
  4. NASANEX (MOMETASONE FUROATE) [Concomitant]

REACTIONS (3)
  - Application site pustules [None]
  - Inappropriate schedule of drug administration [None]
  - Drug administration error [None]
